FAERS Safety Report 18138723 (Version 1)
Quarter: 2020Q3

REPORT INFORMATION
  Report Type: Spontaneous
  Country: US (occurrence: US)
  Receive Date: 20200811
  Receipt Date: 20200811
  Transmission Date: 20201103
  Serious: Yes (Other)
  Sender: FDA-Public Use
  Company Number: None

PATIENT
  Age: 82 Year
  Sex: Female
  Weight: 99 kg

DRUGS (8)
  1. LOSARTAN. [Concomitant]
     Active Substance: LOSARTAN
  2. SILDENAFIL. [Concomitant]
     Active Substance: SILDENAFIL
  3. ROSIVASTATIN [Concomitant]
  4. WARFARIN [Concomitant]
     Active Substance: WARFARIN
  5. AMIODARON [Concomitant]
     Active Substance: AMIODARONE
  6. LETAIRIS [Suspect]
     Active Substance: AMBRISENTAN
     Indication: PULMONARY ARTERIAL HYPERTENSION
     Route: 048
     Dates: start: 20200722
  7. CARVEDILOL. [Concomitant]
     Active Substance: CARVEDILOL
  8. TRAMADOL. [Concomitant]
     Active Substance: TRAMADOL

REACTIONS (5)
  - Dyspnoea [None]
  - Ear discomfort [None]
  - Hypoacusis [None]
  - Pulmonary congestion [None]
  - Choking [None]

NARRATIVE: CASE EVENT DATE: 20200811
